FAERS Safety Report 4274486-X (Version None)
Quarter: 2004Q1

REPORT INFORMATION
  Report Type: 
  Country: None (occurrence: None)
  Receive Date: 20040120
  Receipt Date: 20020226
  Transmission Date: 20041129
  Serious: Yes (Hospitalization)
  Sender: FDA-Public Use
  Company Number: FR-ROCHE-307900

PATIENT
  Age: 61 Year
  Sex: Male
  Weight: 67 kg

DRUGS (13)
  1. DACLIZUMAB [Suspect]
     Route: 042
     Dates: start: 20020206, end: 20020206
  2. DACLIZUMAB [Suspect]
     Route: 042
     Dates: start: 20020219, end: 20020219
  3. MYCOPHENOLATE MOFETIL [Suspect]
     Route: 048
     Dates: start: 20020205
  4. MYCOPHENOLATE MOFETIL [Suspect]
     Route: 048
  5. STEROIDS [Suspect]
     Route: 048
     Dates: start: 20020205
  6. STEROIDS [Suspect]
     Route: 048
     Dates: start: 20020206
  7. NEORAL [Suspect]
     Route: 048
     Dates: start: 20020207, end: 20020225
  8. TENORMIN [Concomitant]
     Indication: HYPERTENSION
  9. ICAZ [Concomitant]
     Indication: HYPERTENSION
  10. ZANTAC [Concomitant]
     Indication: PROPHYLAXIS
  11. EUPRESSYL [Concomitant]
     Indication: HYPERTENSION
  12. LOPRIL [Concomitant]
     Indication: HYPERTENSION
  13. INOVAN [Concomitant]

REACTIONS (2)
  - CYTOMEGALOVIRUS INFECTION [None]
  - KIDNEY TRANSPLANT REJECTION [None]
